FAERS Safety Report 9169538 (Version 2)
Quarter: 2013Q2

REPORT INFORMATION
  Report Type: Spontaneous
  Country: JP (occurrence: JP)
  Receive Date: 20130318
  Receipt Date: 20130403
  Transmission Date: 20140414
  Serious: Yes (Hospitalization)
  Sender: FDA-Public Use
  Company Number: JP-MYLANLABS-2013S1005269

PATIENT
  Age: 74 Year
  Sex: Female
  Weight: 55 kg

DRUGS (3)
  1. CARBOPLATIN [Suspect]
     Indication: LUNG ADENOCARCINOMA
     Route: 041
     Dates: start: 20120821, end: 20130305
  2. ALIMTA [Concomitant]
     Indication: LUNG ADENOCARCINOMA
     Dosage: 7TH DOSE
     Route: 041
     Dates: start: 20120821, end: 20130305
  3. AVASTIN /01555201/ [Concomitant]
     Indication: LUNG ADENOCARCINOMA
     Dosage: 7TH DOSE
     Route: 041
     Dates: start: 20120821, end: 20130305

REACTIONS (1)
  - Anaphylactoid reaction [Recovered/Resolved]
